FAERS Safety Report 15534837 (Version 2)
Quarter: 2018Q4

REPORT INFORMATION
  Report Type: Spontaneous
  Country: US (occurrence: US)
  Receive Date: 20181022
  Receipt Date: 20181213
  Transmission Date: 20190205
  Serious: No
  Sender: FDA-Public Use
  Company Number: US-TEVA-2018-US-964118

PATIENT
  Sex: Female

DRUGS (6)
  1. LOW DOSE NALTREXONE [Concomitant]
     Active Substance: NALTREXONE
  2. AMPYRA [Suspect]
     Active Substance: DALFAMPRIDINE
     Indication: MULTIPLE SCLEROSIS
     Dosage: 20 MILLIGRAM DAILY;
     Route: 048
     Dates: start: 20180314
  3. BACLOFEN. [Concomitant]
     Active Substance: BACLOFEN
  4. AMLODIPINE [Concomitant]
     Active Substance: AMLODIPINE BESYLATE
  5. COPAXONE [Suspect]
     Active Substance: GLATIRAMER ACETATE
     Indication: MULTIPLE SCLEROSIS
     Route: 065
     Dates: start: 20180126
  6. HYDOCHLOROTH [Concomitant]

REACTIONS (3)
  - Injection site reaction [Unknown]
  - Lipoatrophy [Not Recovered/Not Resolved]
  - Injection site pain [Not Recovered/Not Resolved]
